FAERS Safety Report 6841789-1 (Version None)
Quarter: 2010Q3

REPORT INFORMATION
  Report Type: 
  Country: None (occurrence: None)
  Receive Date: 20100709
  Receipt Date: 20100624
  Transmission Date: 20110219
  Serious: Yes (Other)
  Sender: FDA-Public Use
  Company Number: 014408

PATIENT

DRUGS (4)
  1. LACOSAMIDE [Suspect]
     Indication: DIABETIC NEUROPATHY
     Dosage: (300 MG BID ORAL)
     Route: 048
  2. LACOSAMIDE [Suspect]
  3. LACOSAMIDE [Suspect]
  4. LACOSAMIDE [Suspect]

REACTIONS (1)
  - MYOCARDIAL INFARCTION [None]
